FAERS Safety Report 20348501 (Version 2)
Quarter: 2022Q1

REPORT INFORMATION
  Report Type: Spontaneous
  Country: US (occurrence: US)
  Receive Date: 20220119
  Receipt Date: 20220217
  Transmission Date: 20220423
  Serious: Yes (Hospitalization, Other)
  Sender: FDA-Public Use
  Company Number: US-drreddys-LIT/USA/22/0146005

PATIENT
  Age: 29 Year
  Sex: Female

DRUGS (8)
  1. OLANZAPINE [Suspect]
     Active Substance: OLANZAPINE
     Indication: Product used for unknown indication
  2. DEXAMETHASONE SODIUM PHOSPHATE [Suspect]
     Active Substance: DEXAMETHASONE SODIUM PHOSPHATE
     Indication: Spinal cord compression
     Dosage: EVERY MORNING WAS STARTED ON HD 20
     Route: 042
  3. DEXAMETHASONE SODIUM PHOSPHATE [Suspect]
     Active Substance: DEXAMETHASONE SODIUM PHOSPHATE
     Dosage: ON HD 25, DEXAMETHASONE WAS INCREASED TO 10 MG IV Q8 HOURS
     Route: 042
  4. DEXAMETHASONE SODIUM PHOSPHATE [Suspect]
     Active Substance: DEXAMETHASONE SODIUM PHOSPHATE
     Dosage: REDUCED TO ONCE DAILY
  5. LIDOCAINE [Suspect]
     Active Substance: LIDOCAINE
     Indication: Cancer pain
     Dosage: FROM HOSPITAL DAY 16, LOADING DOSE
     Route: 042
  6. LIDOCAINE [Suspect]
     Active Substance: LIDOCAINE
     Dosage: CONTINUOUS 1 MG/KG/H, ON HOSPITAL DAY 17
     Route: 042
  7. LIDOCAINE [Suspect]
     Active Substance: LIDOCAINE
     Dosage: ON HOSPITAL DAY 17, TITRATED TO A MAXIMUM OF 1.6 MG/KG/H
     Route: 042
  8. LIDOCAINE [Suspect]
     Active Substance: LIDOCAINE
     Dosage: DECREASED TO 1 MG/KG/H
     Route: 042

REACTIONS (5)
  - Delirium [Recovering/Resolving]
  - Hypoaesthesia oral [Recovering/Resolving]
  - Anxiety [Recovering/Resolving]
  - Hoigne^s syndrome [Recovering/Resolving]
  - Drug ineffective [Unknown]
